FAERS Safety Report 7101901-6 (Version None)
Quarter: 2010Q4

REPORT INFORMATION
  Report Type: 
  Country: None (occurrence: None)
  Receive Date: 20101108
  Receipt Date: 20101101
  Transmission Date: 20110411
  Serious: Yes (Hospitalization)
  Sender: FDA-Public Use
  Company Number: LEO-2010-00960

PATIENT
  Age: 51 Year
  Sex: Male

DRUGS (4)
  1. INNOHEP [Suspect]
     Indication: ANTICOAGULANT THERAPY
     Dosage: SEE IMAGE: SUBCUTANEOUS
     Route: 058
  2. ASPIRIN [Suspect]
     Indication: ANTICOAGULANT THERAPY
     Dosage: 200 MG (100 MG, 2 IN 1 D);
  3. DIPYRIDAMOLE [Suspect]
     Indication: ANTICOAGULANT THERAPY
     Dosage: 75 MG
  4. HEPARIN [Concomitant]

REACTIONS (12)
  - COAGULOPATHY [None]
  - COMPARTMENT SYNDROME [None]
  - HYPOAESTHESIA [None]
  - IATROGENIC INJURY [None]
  - INJECTION SITE SWELLING [None]
  - MONOPARESIS [None]
  - MOTOR DYSFUNCTION [None]
  - MUSCLE HAEMORRHAGE [None]
  - MUSCLE NECROSIS [None]
  - NERVE COMPRESSION [None]
  - PAIN [None]
  - PARAESTHESIA [None]
